FAERS Safety Report 8637036 (Version 2)
Quarter: 2012Q4

REPORT INFORMATION
  Report Type: 
  Country: US (occurrence: US)
  Receive Date: 20120626
  Receipt Date: 20121102
  Transmission Date: 20130627
  Serious: No
  Sender: FDA-Public Use
  Company Number: US-PFIZER INC-2012152659

PATIENT
  Age: 68 Year
  Sex: Female
  Weight: 72.56 kg

DRUGS (4)
  1. LYRICA [Suspect]
     Indication: FIBROMYALGIA
     Dosage: 50 mg, 2x/day
     Route: 048
     Dates: start: 2012
  2. SAVELLA [Suspect]
     Indication: FIBROMYALGIA
     Dosage: 75 mg, 3x/day
     Dates: start: 2011
  3. VICODIN [Suspect]
     Indication: PAIN
     Dosage: UNK
  4. TEKTURNA [Concomitant]
     Indication: BLOOD PRESSURE HIGH
     Dosage: UNK

REACTIONS (3)
  - Drug ineffective [Unknown]
  - Anaemia [Unknown]
  - Pain [Not Recovered/Not Resolved]
